FAERS Safety Report 8006940-9 (Version None)
Quarter: 2011Q4

REPORT INFORMATION
  Report Type: 
  Country: None (occurrence: None)
  Receive Date: 20111227
  Receipt Date: 20111219
  Transmission Date: 20120403
  Serious: Yes (Other)
  Sender: FDA-Public Use
  Company Number: BR-BAYER-2011-122650

PATIENT
  Age: 26 Year
  Sex: Female

DRUGS (2)
  1. BETASERON [Suspect]
     Indication: MULTIPLE SCLEROSIS
     Dosage: 8 MIU, QOD
     Route: 058
     Dates: start: 20020101
  2. OMEPRAZOLE [Concomitant]
     Indication: GASTRITIS
     Dosage: UNK
     Route: 048
     Dates: start: 20110101, end: 20110101

REACTIONS (5)
  - CONTUSION [None]
  - ABDOMINAL MASS [None]
  - INJECTION SITE ERYTHEMA [None]
  - ERYTHEMA [None]
  - INJECTION SITE PAIN [None]
